FAERS Safety Report 6418620-1 (Version None)
Quarter: 2009Q4

REPORT INFORMATION
  Report Type: 
  Country: None (occurrence: None)
  Receive Date: 20091021
  Receipt Date: 20090820
  Transmission Date: 20100525
  Serious: No
  Sender: FDA-Public Use
  Company Number: ALL1-2009-02061

PATIENT
  Age: 9 Year
  Sex: Female
  Weight: 20.2 kg

DRUGS (3)
  1. VYVANSE [Suspect]
     Indication: ATTENTION DEFICIT/HYPERACTIVITY DISORDER
     Dosage: 20 MG, 1X/DAY:QD, ORAL : 30 MG, 1X/DAY:QD, ORAL
     Route: 048
     Dates: start: 20090223, end: 20090504
  2. VYVANSE [Suspect]
     Indication: ATTENTION DEFICIT/HYPERACTIVITY DISORDER
     Dosage: 20 MG, 1X/DAY:QD, ORAL : 30 MG, 1X/DAY:QD, ORAL
     Route: 048
     Dates: start: 20090505, end: 20090814
  3. CYPROHEPTADINE HCL [Concomitant]

REACTIONS (2)
  - CILIARY MUSCLE SPASM [None]
  - VISION BLURRED [None]
